FAERS Safety Report 4422579-6 (Version None)
Quarter: 2004Q3

REPORT INFORMATION
  Report Type: 
  Country: None (occurrence: None)
  Receive Date: 20040713
  Receipt Date: 20030612
  Transmission Date: 20050211
  Serious: No
  Sender: FDA-Public Use
  Company Number: PHEH2003US05060

PATIENT
  Sex: Female

DRUGS (2)
  1. ELIDEL [Suspect]
     Dosage: TOPICAL
     Route: 061
     Dates: start: 20030515
  2. ALCOHOL(ETHANOL) [Suspect]

REACTIONS (5)
  - BURNING SENSATION [None]
  - DRUG INTERACTION [None]
  - ERYTHEMA [None]
  - FEELING HOT [None]
  - PRURITUS [None]
